FAERS Safety Report 23056233 (Version 1)
Quarter: 2023Q4

REPORT INFORMATION
  Report Type: Other
  Country: None (occurrence: US)
  Receive Date: 20231011
  Receipt Date: 20231011
  Transmission Date: 20240110
  Serious: Yes (Hospitalization, Other)
  Sender: FDA-Public Use
  Company Number: US-Appco Pharma LLC-2146939

PATIENT
  Age: 75 Year
  Sex: Male

DRUGS (3)
  1. HYDROXYCHLOROQUINE SULFATE [Suspect]
     Active Substance: HYDROXYCHLOROQUINE SULFATE
     Indication: Product used for unknown indication
     Route: 065
  2. IVERMECTIN [Suspect]
     Active Substance: IVERMECTIN
     Route: 065
  3. FENBENDAZOLE [Suspect]
     Active Substance: FENBENDAZOLE
     Route: 065

REACTIONS (9)
  - Electrocardiogram QT prolonged [Recovered/Resolved]
  - Seizure [Recovered/Resolved]
  - Torsade de pointes [Recovered/Resolved]
  - Tachyarrhythmia [Recovered/Resolved]
  - Toxicity to various agents [Recovered/Resolved]
  - Syncope [Recovered/Resolved]
  - Vomiting [Recovered/Resolved]
  - Unresponsive to stimuli [Recovered/Resolved]
  - Disorientation [Recovered/Resolved]
